FAERS Safety Report 20562355 (Version 2)
Quarter: 2022Q1

REPORT INFORMATION
  Report Type: Spontaneous
  Country: CN (occurrence: CN)
  Receive Date: 20220307
  Receipt Date: 20220313
  Transmission Date: 20220424
  Serious: Yes (Death, Hospitalization, Other)
  Sender: FDA-Public Use
  Company Number: CN-BRISTOL-MYERS SQUIBB COMPANY-BMS-2022-027731

PATIENT
  Sex: Male
  Weight: 60 kg

DRUGS (1)
  1. BARACLUDE [Suspect]
     Active Substance: ENTECAVIR
     Indication: Hepatitis B
     Dosage: 0.5 MILLIGRAM, ONCE PER DAY
     Route: 048

REACTIONS (5)
  - Death [Fatal]
  - Coma hepatic [Unknown]
  - Liver disorder [Unknown]
  - Ascites [Unknown]
  - Prescribed underdose [Unknown]
